FAERS Safety Report 12687383 (Version 1)
Quarter: 2016Q3

REPORT INFORMATION
  Report Type: Report from Study
  Country: PA (occurrence: PA)
  Receive Date: 20160826
  Receipt Date: 20160826
  Transmission Date: 20161109
  Serious: Yes (Other)
  Sender: FDA-Public Use
  Company Number: PA-ROCHE-1820575

PATIENT
  Sex: Female

DRUGS (4)
  1. RITUXIMAB [Suspect]
     Active Substance: RITUXIMAB
     Indication: DERMATOMYOSITIS
     Route: 042
     Dates: start: 20160825, end: 20160825
  2. ACETAMINOPHEN. [Concomitant]
     Active Substance: ACETAMINOPHEN
     Indication: PREMEDICATION
     Dosage: 30 MINUTES BEFORE INFUSION
     Route: 048
     Dates: start: 20160825, end: 20160825
  3. METHYLPREDNISOLONE. [Concomitant]
     Active Substance: METHYLPREDNISOLONE
     Indication: PREMEDICATION
     Dosage: 30 MINUTES BEFORE INFUSION
     Route: 042
     Dates: start: 20160825, end: 20160825
  4. BENADRYL (PANAMA) [Concomitant]
     Indication: PREMEDICATION
     Dosage: 30 MINUTES BEFORE INFUSION
     Route: 048
     Dates: start: 20160825, end: 20160825

REACTIONS (3)
  - Erythema [Recovered/Resolved]
  - Respiratory distress [Recovered/Resolved]
  - Off label use [Unknown]

NARRATIVE: CASE EVENT DATE: 20160825
